FAERS Safety Report 8928637 (Version 2)
Quarter: 2013Q4

REPORT INFORMATION
  Report Type: Spontaneous
  Country: US (occurrence: US)
  Receive Date: 20121128
  Receipt Date: 20131210
  Transmission Date: 20140711
  Serious: Yes (Other)
  Sender: FDA-Public Use
  Company Number: US-BAYER-2012-124556

PATIENT
  Age: 31 Year
  Sex: Female

DRUGS (5)
  1. YAZ [Suspect]
     Indication: CONTRACEPTION
  2. YASMIN [Suspect]
     Indication: CONTRACEPTION
  3. OCELLA [Suspect]
     Indication: CONTRACEPTION
  4. MAXALT [Concomitant]
     Route: 048
  5. DIAZEPAM [Concomitant]
     Dosage: UNK
     Route: 048
     Dates: start: 20110521

REACTIONS (8)
  - Cholecystitis chronic [None]
  - Cholelithiasis [None]
  - Gallbladder disorder [None]
  - Pain [None]
  - Fear of disease [None]
  - Injury [None]
  - Emotional distress [None]
  - Pain [None]
